FAERS Safety Report 6161157-8 (Version None)
Quarter: 2009Q2

REPORT INFORMATION
  Report Type: 
  Country: None (occurrence: None)
  Receive Date: 20090417
  Receipt Date: 20090417
  Transmission Date: 20091009
  Serious: Yes (Hospitalization)
  Sender: FDA-Public Use
  Company Number: None

PATIENT
  Age: 68 Year
  Sex: Female
  Weight: 65.7716 kg

DRUGS (1)
  1. BONIVA [Suspect]
     Indication: BONE DISORDER
     Dosage: 1 MONTH 2-3 YR.

REACTIONS (6)
  - EAR DISORDER [None]
  - FEELING ABNORMAL [None]
  - HYPOAESTHESIA [None]
  - HYPOAESTHESIA ORAL [None]
  - MALAISE [None]
  - THROAT TIGHTNESS [None]
